FAERS Safety Report 9574931 (Version 2)
Quarter: 2013Q4

REPORT INFORMATION
  Report Type: Spontaneous
  Country: JP (occurrence: JP)
  Receive Date: 20131001
  Receipt Date: 20131002
  Transmission Date: 20140711
  Serious: Yes (Other)
  Sender: FDA-Public Use
  Company Number: JP-B.I. PHARMACEUTICALS,INC./RIDGEFIELD-2013-BI-30199NB

PATIENT
  Sex: 0

DRUGS (2)
  1. MICARDIS [Suspect]
     Indication: HYPERTENSION
     Dosage: 40 MG
     Route: 065
  2. UNKNOWN DRUG [Concomitant]
     Dosage: STRENGTH: 2  TAB, DAILY DOSE: 2DF

REACTIONS (2)
  - Physical assault [Unknown]
  - Memory impairment [Unknown]
